FAERS Safety Report 6190034-1 (Version None)
Quarter: 2009Q2

REPORT INFORMATION
  Report Type: 
  Country: None (occurrence: None)
  Receive Date: 20090512
  Receipt Date: 20090512
  Transmission Date: 20091009
  Serious: Yes (Life-Threatening)
  Sender: FDA-Public Use
  Company Number: None

PATIENT
  Age: 81 Year
  Sex: Female
  Weight: 77.1115 kg

DRUGS (1)
  1. ADVAIR DISKUS 250/50 [Suspect]
     Indication: VIRAL INFECTION
     Dosage: INHALE ONCE EVERY TWELVE HOURS INHAL
     Route: 055
     Dates: start: 20090504, end: 20090504

REACTIONS (4)
  - DYSPNOEA [None]
  - SWELLING FACE [None]
  - SWOLLEN TONGUE [None]
  - TONGUE DISCOLOURATION [None]
